FAERS Safety Report 17640950 (Version 1)
Quarter: 2020Q2

REPORT INFORMATION
  Report Type: Other
  Country: GB (occurrence: GB)
  Receive Date: 20200408
  Receipt Date: 20200408
  Transmission Date: 20200713
  Serious: Yes (Death)
  Sender: FDA-Public Use
  Company Number: GB-CELLTRION INC.-2020GB021325

PATIENT

DRUGS (12)
  1. PERTUZUMAB. [Suspect]
     Active Substance: PERTUZUMAB
     Indication: BREAST CANCER
     Dosage: 840 MG
     Route: 042
     Dates: start: 20200205, end: 20200205
  2. EPIRUBICIN [Concomitant]
     Active Substance: EPIRUBICIN
  3. METOCLOPRAMIDE. [Concomitant]
     Active Substance: METOCLOPRAMIDE
  4. TRASTUZUMAB (UNKNOWN) [Suspect]
     Active Substance: TRASTUZUMAB
     Indication: BREAST CANCER
     Dosage: 588 MG
     Route: 042
     Dates: start: 20200205, end: 20200205
  5. FILGRASTIM [Concomitant]
     Active Substance: FILGRASTIM
  6. LORAZEPAM. [Concomitant]
     Active Substance: LORAZEPAM
  7. DOCETAXEL. [Suspect]
     Active Substance: DOCETAXEL
     Indication: BREAST CANCER
     Dosage: 140 MG
     Route: 042
     Dates: start: 20200205, end: 20200205
  8. GRANISETRON [Concomitant]
     Active Substance: GRANISETRON
  9. DEXAMETHASONE. [Concomitant]
     Active Substance: DEXAMETHASONE
  10. FLUOROURACIL. [Concomitant]
     Active Substance: FLUOROURACIL
  11. ROLAPITANT [Concomitant]
     Active Substance: ROLAPITANT
  12. CYCLOPHOSPHAMIDE. [Concomitant]
     Active Substance: CYCLOPHOSPHAMIDE

REACTIONS (3)
  - Product use issue [Unknown]
  - Acute interstitial pneumonitis [Fatal]
  - Respiratory symptom [Fatal]

NARRATIVE: CASE EVENT DATE: 20200214
